FAERS Safety Report 17765497 (Version 1)
Quarter: 2020Q2

REPORT INFORMATION
  Report Type: Spontaneous
  Country: US (occurrence: US)
  Receive Date: 20200509
  Receipt Date: 20200509
  Transmission Date: 20200714
  Serious: Yes (Hospitalization)
  Sender: FDA-Public Use
  Company Number: None

PATIENT
  Age: 12 Year
  Sex: Male
  Weight: 42.9 kg

DRUGS (1)
  1. LACTOBACILLUS PLANTURM 299V [Suspect]
     Active Substance: LACTOBACILLUS PLANTARUM
     Dates: end: 20200408

REACTIONS (5)
  - Sepsis [None]
  - Pyrexia [None]
  - Enterobacter test positive [None]
  - Device related infection [None]
  - Vomiting [None]

NARRATIVE: CASE EVENT DATE: 20200423
